FAERS Safety Report 4573056-3 (Version None)
Quarter: 2005Q1

REPORT INFORMATION
  Report Type: 
  Country: None (occurrence: None)
  Receive Date: 20050204
  Receipt Date: 20050118
  Transmission Date: 20050727
  Serious: Yes (Hospitalization)
  Sender: FDA-Public Use
  Company Number: REM_00077_2004

PATIENT
  Age: 55 Year
  Sex: Male
  Weight: 113 kg

DRUGS (4)
  1. REMODULIN [Suspect]
     Indication: PULMONARY HYPERTENSION
     Dates: start: 20040922
  2. ALTACE [Concomitant]
  3. LASIX [Concomitant]
  4. GLYBURIDE [Concomitant]

REACTIONS (12)
  - BLOOD PRESSURE INCREASED [None]
  - BLOOD PRESSURE SYSTOLIC INCREASED [None]
  - BODY TEMPERATURE DECREASED [None]
  - DIARRHOEA [None]
  - ERYTHEMA [None]
  - FLUSHING [None]
  - GASTROENTERITIS VIRAL [None]
  - HEADACHE [None]
  - MEDICAL DEVICE COMPLICATION [None]
  - MEDICATION ERROR [None]
  - PAIN IN EXTREMITY [None]
  - VOMITING [None]
